FAERS Safety Report 8060948-6 (Version None)
Quarter: 2012Q1

REPORT INFORMATION
  Report Type: 
  Country: None (occurrence: None)
  Receive Date: 20120120
  Receipt Date: 20120116
  Transmission Date: 20120608
  Serious: Yes (Hospitalization)
  Sender: FDA-Public Use
  Company Number: US-AMGEN-USASP2011011233

PATIENT
  Age: 62 Year
  Sex: Female
  Weight: 72.562 kg

DRUGS (6)
  1. LEFLUNOMIDE [Concomitant]
     Dosage: 20 MG, UNK
  2. LABETALOL HCL [Concomitant]
     Dosage: 100 MG, UNK
  3. ENBREL [Suspect]
     Indication: RHEUMATOID ARTHRITIS
     Dosage: 50 MG, QWK
     Dates: start: 20090710
  4. MOTRIN IB [Concomitant]
     Dosage: 200 MG, UNK
  5. SIMVASTATIN [Concomitant]
     Dosage: 10 MG, UNK
  6. PREDNISONE TAB [Concomitant]
     Dosage: 5 MG, UNK

REACTIONS (9)
  - ABDOMINAL DISCOMFORT [None]
  - NASOPHARYNGITIS [None]
  - CEREBRAL HAEMORRHAGE [None]
  - VOMITING [None]
  - NAUSEA [None]
  - COUGH [None]
  - INFLUENZA [None]
  - RHEUMATOID ARTHRITIS [None]
  - INJECTION SITE PRURITUS [None]
